FAERS Safety Report 5051906-4 (Version None)
Quarter: 2006Q3

REPORT INFORMATION
  Report Type: 
  Country: None (occurrence: None)
  Receive Date: 20060714
  Receipt Date: 20060515
  Transmission Date: 20061208
  Serious: Yes (Hospitalization)
  Sender: FDA-Public Use
  Company Number: US-MERCK-0605USA02706

PATIENT
  Age: 57 Year
  Sex: Female

DRUGS (5)
  1. VYTORIN [Suspect]
     Indication: BLOOD CHOLESTEROL INCREASED
     Route: 048
     Dates: start: 20060302, end: 20060426
  2. AVALIDE [Concomitant]
     Indication: BLOOD PRESSURE
     Route: 048
     Dates: start: 20060502
  3. FORTAMET EXTENDED RELEASE TABLETS [Concomitant]
     Route: 065
  4. CYMBALTA [Concomitant]
     Route: 065
  5. CELEBREX [Concomitant]
     Route: 065

REACTIONS (9)
  - ADVERSE DRUG REACTION [None]
  - ANXIETY [None]
  - BLISTER [None]
  - DYSPHAGIA [None]
  - OESOPHAGEAL ULCER [None]
  - PAIN [None]
  - PHARYNGEAL OEDEMA [None]
  - SKIN EXFOLIATION [None]
  - VOMITING [None]
